FAERS Safety Report 7285858-3 (Version None)
Quarter: 2011Q1

REPORT INFORMATION
  Report Type: 
  Country: None (occurrence: None)
  Receive Date: 20110210
  Receipt Date: 20110127
  Transmission Date: 20110831
  Serious: Yes (Hospitalization)
  Sender: FDA-Public Use
  Company Number: GB-CELGENEUS-167-20785-11012733

PATIENT
  Age: 70 Year
  Sex: Female

DRUGS (8)
  1. TINZAPARIN [Concomitant]
     Route: 065
  2. THALIDOMIDE [Suspect]
     Indication: MANTLE CELL LYMPHOMA
     Route: 048
     Dates: start: 20101001, end: 20101220
  3. PREDNISOLONE [Concomitant]
     Route: 048
  4. OMEPRAZOLE [Concomitant]
     Route: 048
  5. SERETIDE 500 ACCUHALER [Concomitant]
     Indication: RESPIRATORY DISORDER
     Route: 055
  6. METOCLOPRAMIDE HCL [Concomitant]
     Route: 048
  7. PREDNISOLONE [Concomitant]
     Route: 048
  8. LORAZEPAM [Concomitant]
     Route: 048

REACTIONS (2)
  - PNEUMONIA [None]
  - PULMONARY FIBROSIS [None]
